FAERS Safety Report 10653261 (Version 4)
Quarter: 2015Q3

REPORT INFORMATION
  Report Type: Spontaneous
  Country: US (occurrence: US)
  Receive Date: 20141215
  Receipt Date: 20150819
  Transmission Date: 20151125
  Serious: Yes (Hospitalization, Other)
  Sender: FDA-Public Use
  Company Number: US-GILEAD-2014-0127186

PATIENT
  Age: 72 Year
  Sex: Female
  Weight: 109.1 kg

DRUGS (14)
  1. FOLIC ACID. [Concomitant]
     Active Substance: FOLIC ACID
  2. METOPROLOL [Concomitant]
     Active Substance: METOPROLOL
  3. HUMALOG MIX [Concomitant]
     Active Substance: INSULIN LISPRO
  4. ALLOPURINOL. [Concomitant]
     Active Substance: ALLOPURINOL
  5. CALCITROL                          /00514701/ [Concomitant]
  6. OXYGEN. [Concomitant]
     Active Substance: OXYGEN
  7. TIMOLOL. [Concomitant]
     Active Substance: TIMOLOL
  8. LETAIRIS [Suspect]
     Active Substance: AMBRISENTAN
     Indication: PULMONARY HYPERTENSION
     Dosage: 5 MG, QD
     Route: 065
     Dates: start: 20141021
  9. PLAVIX [Concomitant]
     Active Substance: CLOPIDOGREL BISULFATE
  10. FUROSEMIDE. [Concomitant]
     Active Substance: FUROSEMIDE
  11. HYDRALAZINE [Concomitant]
     Active Substance: HYDRALAZINE HYDROCHLORIDE
  12. LETAIRIS [Suspect]
     Active Substance: AMBRISENTAN
     Indication: ANTINUCLEAR ANTIBODY
  13. REVATIO [Concomitant]
     Active Substance: SILDENAFIL CITRATE
  14. VYTORIN [Concomitant]
     Active Substance: EZETIMIBE\SIMVASTATIN

REACTIONS (5)
  - Dyspnoea [Unknown]
  - Fluid overload [Unknown]
  - Oedema [Unknown]
  - Haemoglobin decreased [Unknown]
  - Cardiac failure congestive [Unknown]
